FAERS Safety Report 9251752 (Version 1)
Quarter: 2013Q2

REPORT INFORMATION
  Report Type: Spontaneous
  Country: IT (occurrence: IT)
  Receive Date: 20130424
  Receipt Date: 20130424
  Transmission Date: 20140414
  Serious: Yes (Hospitalization)
  Sender: FDA-Public Use
  Company Number: IT-BRISTOL-MYERS SQUIBB COMPANY-18791681

PATIENT
  Age: 86 Year
  Sex: Male

DRUGS (4)
  1. COUMADIN TABS 5 MG [Suspect]
     Indication: ATRIAL FIBRILLATION
     Dosage: 1DF:DOSAGE/1/UNIT/DAILY.
     Route: 049
     Dates: start: 20120101, end: 20130311
  2. PANTORC [Concomitant]
  3. SEROQUEL [Concomitant]
  4. TRITTICO [Concomitant]
     Dosage: LASO ON : 75 MG DIE

REACTIONS (4)
  - Ischaemic stroke [Unknown]
  - Haematemesis [Recovered/Resolved]
  - Melaena [Recovered/Resolved]
  - Gastric ulcer haemorrhage [Unknown]
